FAERS Safety Report 7595877-5 (Version None)
Quarter: 2011Q3

REPORT INFORMATION
  Report Type: 
  Country: None (occurrence: None)
  Receive Date: 20110707
  Receipt Date: 20110627
  Transmission Date: 20111222
  Serious: Yes (Hospitalization)
  Sender: FDA-Public Use
  Company Number: US-UCBSA-036103

PATIENT
  Sex: Female
  Weight: 93.8 kg

DRUGS (2)
  1. CERTOLIZUMAB PEGOL [Suspect]
     Route: 058
     Dates: end: 20110627
  2. CERTOLIZUMAB PEGOL [Suspect]
     Indication: PSORIATIC ARTHROPATHY
     Dosage: WEEK 0, 2 AND 4.
     Route: 058
     Dates: start: 20100623

REACTIONS (2)
  - HYPERGLYCAEMIA [None]
  - UPPER RESPIRATORY TRACT INFECTION [None]
